FAERS Safety Report 4413891-5 (Version None)
Quarter: 2004Q3

REPORT INFORMATION
  Report Type: 
  Country: None (occurrence: None)
  Receive Date: 20040728
  Receipt Date: 20040716
  Transmission Date: 20050211
  Serious: Yes (Hospitalization)
  Sender: FDA-Public Use
  Company Number: STA-AE-04-MTX-311

PATIENT
  Age: 53 Year
  Sex: Female

DRUGS (5)
  1. METHOTREXATE [Suspect]
     Indication: RHEUMATOID ARTHRITIS
     Dosage: 15 MG 1X PER WK, ORAL
     Route: 048
  2. HYDROCORTISONE [Suspect]
     Dosage: 30 MG 1X PER 1 DAY, ORAL
     Route: 048
  3. SPECIAFOLIDINE (FOLIC ACID) [Concomitant]
  4. FOSAMAX [Concomitant]
  5. VOLTAREN [Concomitant]

REACTIONS (3)
  - CRYPTOCOCCAL CUTANEOUS INFECTION [None]
  - LYMPHADENOPATHY [None]
  - PYREXIA [None]
